FAERS Safety Report 9841321 (Version 4)
Quarter: 2014Q2

REPORT INFORMATION
  Report Type: Report from Study
  Country: IT (occurrence: IT)
  Receive Date: 20140124
  Receipt Date: 20140516
  Transmission Date: 20141212
  Serious: Yes (Hospitalization, Other)
  Sender: FDA-Public Use
  Company Number: IT-JNJFOC-20140109397

PATIENT
  Age: 13 Year
  Sex: Female
  Weight: 36.7 kg

DRUGS (3)
  1. REMICADE [Suspect]
     Indication: CROHN^S DISEASE
     Route: 042
     Dates: start: 20101217
  2. 5-ASA [Concomitant]
     Route: 054
  3. HYDROCORTISONE [Concomitant]
     Route: 065

REACTIONS (3)
  - Large intestinal stenosis [Recovered/Resolved with Sequelae]
  - Crohn^s disease [Recovered/Resolved with Sequelae]
  - Anal fistula [Recovered/Resolved]
